FAERS Safety Report 11113029 (Version 1)
Quarter: 2015Q2

REPORT INFORMATION
  Report Type: Spontaneous
  Country: US (occurrence: None)
  Receive Date: 20150504
  Receipt Date: 20150504
  Transmission Date: 20150821
  Serious: Yes (Hospitalization)
  Sender: FDA-Public Use
  Company Number: 1367584

PATIENT
  Age: 66 Year
  Sex: Female
  Weight: 56.7 kg

DRUGS (6)
  1. FOLINIC ACID [Concomitant]
     Active Substance: LEUCOVORIN
  2. IRINOTECAN [Concomitant]
     Active Substance: IRINOTECAN
  3. FLUOROURACIL. [Concomitant]
     Active Substance: FLUOROURACIL
  4. OXALIPLATIN. [Concomitant]
     Active Substance: OXALIPLATIN
  5. AVASTIN [Suspect]
     Active Substance: BEVACIZUMAB
     Indication: COLON CANCER
     Dosage: (300 MG, 1 IN 2 WKS), INTRAVENOUS (NOT OTHERWISE SPECIFIED)
     Route: 042
     Dates: start: 20140214, end: 20140228
  6. LEUCOVORIN (CALCIUM FOLINATE) [Concomitant]
     Active Substance: LEUCOVORIN

REACTIONS (1)
  - Enterocutaneous fistula [None]

NARRATIVE: CASE EVENT DATE: 20140305
